FAERS Safety Report 22223619 (Version 1)
Quarter: 2023Q2

REPORT INFORMATION
  Report Type: Spontaneous
  Country: US (occurrence: None)
  Receive Date: 20230417
  Receipt Date: 20230417
  Transmission Date: 20230722
  Serious: Yes (Other)
  Sender: FDA-Public Use
  Company Number: None

PATIENT
  Age: 70 Year
  Sex: Male
  Weight: 80.29 kg

DRUGS (8)
  1. ATENOLOL [Suspect]
     Active Substance: ATENOLOL
     Indication: Hypertension
     Dosage: OTHER QUANTITY : 1/2 TABLETS;?FREQUENCY : DAILY;?
     Route: 048
     Dates: start: 20220118, end: 20220202
  2. METOPROLOL [Concomitant]
     Active Substance: METOPROLOL
  3. BENAZEPRIL [Concomitant]
     Active Substance: BENAZEPRIL HYDROCHLORIDE
  4. SIDENEFIL [Concomitant]
  5. SPIRONOLACTONE [Concomitant]
     Active Substance: SPIRONOLACTONE
  6. LATANOPROST [Concomitant]
     Active Substance: LATANOPROST
  7. NITROGLYCERIN [Concomitant]
     Active Substance: NITROGLYCERIN
  8. VITAMIN C [Concomitant]
     Active Substance: ASCORBIC ACID

REACTIONS (6)
  - Dyspnoea [None]
  - Muscle spasms [None]
  - Erectile dysfunction [None]
  - Condition aggravated [None]
  - Arteriosclerosis [None]
  - Therapy cessation [None]

NARRATIVE: CASE EVENT DATE: 20220118
